FAERS Safety Report 5701899-9 (Version None)
Quarter: 2008Q2

REPORT INFORMATION
  Report Type: 
  Country: None (occurrence: None)
  Receive Date: 20080411
  Receipt Date: 20080402
  Transmission Date: 20081010
  Serious: Yes (Other)
  Sender: FDA-Public Use
  Company Number: PHFR2008GB00957

PATIENT
  Age: 51 Year
  Sex: Female

DRUGS (2)
  1. FEMARA [Suspect]
     Indication: BREAST CANCER
     Dosage: UNK, UNK
     Route: 065
     Dates: start: 20061001
  2. PARACETAMOL [Concomitant]
     Dosage: 1000 MG

REACTIONS (9)
  - ALOPECIA [None]
  - ARTHRALGIA [None]
  - BALANCE DISORDER [None]
  - BONE PAIN [None]
  - DIARRHOEA [None]
  - MYALGIA [None]
  - OSTEOPOROSIS [None]
  - VULVOVAGINAL DRYNESS [None]
  - WEIGHT INCREASED [None]
